FAERS Safety Report 5963891-9 (Version None)
Quarter: 2008Q4

REPORT INFORMATION
  Report Type: 
  Country: None (occurrence: None)
  Receive Date: 20081124
  Receipt Date: 20081113
  Transmission Date: 20090506
  Serious: Yes (Other)
  Sender: FDA-Public Use
  Company Number: CL-ROCHE-576995

PATIENT
  Age: 33 Year
  Sex: Female
  Weight: 66 kg

DRUGS (2)
  1. ROACNETAN [Suspect]
     Indication: ACNE
     Route: 048
     Dates: start: 20080410, end: 20080706
  2. ROACNETAN [Suspect]
     Route: 048
     Dates: start: 20080707, end: 20080714

REACTIONS (1)
  - ABORTION SPONTANEOUS [None]
